FAERS Safety Report 9283907 (Version 1)
Quarter: 2013Q2

REPORT INFORMATION
  Report Type: Spontaneous
  Country: US (occurrence: US)
  Receive Date: 20130510
  Receipt Date: 20130510
  Transmission Date: 20140414
  Serious: No
  Sender: FDA-Public Use
  Company Number: US-COVIDIEN/TYCO HEALTHCARE/MALLINCKRODT-T201301639

PATIENT
  Age: 57 Year
  Sex: Male
  Weight: 79.37 kg

DRUGS (2)
  1. FENTANYL TRANSDERMAL SYSTEM [Suspect]
     Indication: PAIN
     Dosage: 100 MCG/HR, Q 48 HRS
     Dates: start: 2011
  2. TYLENOL                            /00020001/ [Concomitant]
     Indication: PAIN
     Dosage: UNK UNK, PRN

REACTIONS (4)
  - Drug dose omission [Recovered/Resolved]
  - Feeling abnormal [Recovered/Resolved]
  - Headache [Recovered/Resolved]
  - Vomiting [Recovered/Resolved]
